FAERS Safety Report 8782715 (Version 1)
Quarter: 2012Q4

REPORT INFORMATION
  Report Type: 
  Country: US (occurrence: US)
  Receive Date: 20120913
  Receipt Date: 20120913
  Transmission Date: 20130627
  Serious: No
  Sender: FDA-Public Use
  Company Number: US-ASTRAZENECA-2012SE65830

PATIENT
  Sex: Female

DRUGS (6)
  1. RHINOCORT AQUA [Suspect]
     Indication: RHINITIS ALLERGIC
     Dosage: ONE SPRAY TWO TIMES A DAY
     Route: 045
  2. ADVAIR [Concomitant]
  3. SINGULAIR [Concomitant]
  4. ZYRTEC [Concomitant]
  5. BENADRYL [Concomitant]
  6. ALBUTEROL [Concomitant]

REACTIONS (5)
  - Sinusitis [Unknown]
  - Impaired work ability [Unknown]
  - Therapeutic response unexpected [Unknown]
  - Drug dose omission [Unknown]
  - Off label use [Unknown]
